FAERS Safety Report 6584880-X (Version None)
Quarter: 2010Q1

REPORT INFORMATION
  Report Type: 
  Country: None (occurrence: None)
  Receive Date: 20100204
  Receipt Date: 20100126
  Transmission Date: 20100710
  Serious: Yes (Hospitalization)
  Sender: FDA-Public Use
  Company Number: 005409

PATIENT
  Sex: Female

DRUGS (1)
  1. CIMZIA [Suspect]
     Indication: CROHN'S DISEASE
     Dosage: (400 MG 1X/MONTH, MONTHLY SUBCUTANEOUS)
     Route: 058
     Dates: start: 20090202

REACTIONS (1)
  - GASTROINTESTINAL HAEMORRHAGE [None]
